FAERS Safety Report 5340902-5 (Version None)
Quarter: 2007Q2

REPORT INFORMATION
  Report Type: 
  Country: None (occurrence: None)
  Receive Date: 20070531
  Receipt Date: 20070521
  Transmission Date: 20071010
  Serious: Yes (Other)
  Sender: FDA-Public Use
  Company Number: US-GENENTECH-241778

PATIENT
  Age: 10 Year
  Sex: Female

DRUGS (1)
  1. NUTROPIN [Suspect]
     Indication: TURNER'S SYNDROME

REACTIONS (2)
  - AORTIC DILATATION [None]
  - GROWTH RETARDATION [None]
